FAERS Safety Report 18666226 (Version 1)
Quarter: 2020Q4

REPORT INFORMATION
  Report Type: Spontaneous
  Country: IT (occurrence: IT)
  Receive Date: 20201226
  Receipt Date: 20201226
  Transmission Date: 20210114
  Serious: Yes (Other)
  Sender: FDA-Public Use
  Company Number: NVSC2020IT336218

PATIENT
  Age: 46 Year

DRUGS (1)
  1. CERITINIB [Suspect]
     Active Substance: CERITINIB
     Indication: PRODUCT USED FOR UNKNOWN INDICATION
     Dosage: UNK (FREQUENT DOSE REDUCTIONS AND FREQUESNT SUSPENSIONS)
     Route: 065
     Dates: start: 201608

REACTIONS (5)
  - Dysarthria [Unknown]
  - Metastases to meninges [Unknown]
  - Vomiting [Unknown]
  - Ataxia [Unknown]
  - Gastrointestinal toxicity [Unknown]

NARRATIVE: CASE EVENT DATE: 201701
